FAERS Safety Report 5754766-9 (Version None)
Quarter: 2008Q2

REPORT INFORMATION
  Report Type: 
  Country: None (occurrence: None)
  Receive Date: 20080530
  Receipt Date: 20080523
  Transmission Date: 20081010
  Serious: Yes (Hospitalization)
  Sender: FDA-Public Use
  Company Number: JP-PFIZER INC-2008044680

PATIENT
  Age: 39 Year
  Sex: Male

DRUGS (1)
  1. SULPERAZON [Suspect]
     Dosage: DAILY DOSE:2GRAM
     Route: 042

REACTIONS (1)
  - PLATELET COUNT DECREASED [None]
